FAERS Safety Report 17604674 (Version 1)
Quarter: 2020Q1

REPORT INFORMATION
  Report Type: Spontaneous
  Country: US (occurrence: US)
  Receive Date: 20200331
  Receipt Date: 20200331
  Transmission Date: 20200409
  Serious: No
  Sender: FDA-Public Use
  Company Number: None

PATIENT
  Age: 54 Year
  Sex: Female
  Weight: 76.5 kg

DRUGS (4)
  1. CLARITIN-D NOS [Concomitant]
     Active Substance: LORATADINE\PSEUDOEPHEDRINE SULFATE
  2. ESTRADIOL TRANSDERMAL SYSTEM [Concomitant]
     Active Substance: ESTRADIOL
  3. ESTRADIOL TRANSDERMAL SYSTEM [Suspect]
     Active Substance: ESTRADIOL
     Indication: HYSTERECTOMY
     Dosage: ?          QUANTITY:4 PATCH(ES);OTHER FREQUENCY:ONCE WEEKLY;?
     Route: 062
     Dates: start: 20200304, end: 20200331
  4. SYNTHROID [Concomitant]
     Active Substance: LEVOTHYROXINE SODIUM

REACTIONS (7)
  - Application site irritation [None]
  - Dermal absorption impaired [None]
  - Insurance issue [None]
  - Product size issue [None]
  - Device adhesion issue [None]
  - Application site erythema [None]
  - Product design issue [None]

NARRATIVE: CASE EVENT DATE: 20200318
